FAERS Safety Report 7849529-4 (Version None)
Quarter: 2011Q4

REPORT INFORMATION
  Report Type: 
  Country: None (occurrence: None)
  Receive Date: 20111024
  Receipt Date: 20111006
  Transmission Date: 20120403
  Serious: Yes (Death)
  Sender: FDA-Public Use
  Company Number: 20111006

PATIENT
  Sex: Female
  Weight: 20.4119 kg

DRUGS (1)
  1. ALINIA [Suspect]
     Indication: DIARRHOEA
     Dosage: 10ML (200MG), BID, 047
     Dates: start: 20111005

REACTIONS (8)
  - OXYGEN SATURATION DECREASED [None]
  - CARDIAC ARREST [None]
  - UNRESPONSIVE TO STIMULI [None]
  - ABDOMINAL DISTENSION [None]
  - ATELECTASIS [None]
  - RESPIRATORY DISTRESS [None]
  - DEHYDRATION [None]
  - TACHYCARDIA [None]
